FAERS Safety Report 5549141-6 (Version None)
Quarter: 2007Q4

REPORT INFORMATION
  Report Type: 
  Country: None (occurrence: None)
  Receive Date: 20071210
  Receipt Date: 20071203
  Transmission Date: 20080405
  Serious: Yes (Hospitalization)
  Sender: FDA-Public Use
  Company Number: FABR-12300

PATIENT
  Age: 28 Year
  Sex: Female
  Weight: 65.91 kg

DRUGS (2)
  1. FABRAZYME [Suspect]
     Indication: FABRY'S DISEASE
     Dosage: 65 MG Q2WKS IV
     Route: 042
     Dates: start: 20060823
  2. EFFEXOR [Concomitant]

REACTIONS (5)
  - ANXIETY [None]
  - ENDOMETRIOSIS [None]
  - FEELING ABNORMAL [None]
  - HOT FLUSH [None]
  - PELVIC CONGESTION [None]
